FAERS Safety Report 19362837 (Version 1)
Quarter: 2021Q2

REPORT INFORMATION
  Report Type: Spontaneous
  Country: JP (occurrence: JP)
  Receive Date: 20210602
  Receipt Date: 20210602
  Transmission Date: 20210717
  Serious: Yes (Hospitalization)
  Sender: FDA-Public Use
  Company Number: JP-ALLERGAN-2120881US

PATIENT
  Sex: Female
  Weight: 40 kg

DRUGS (2)
  1. SHOSAIKOTO [Suspect]
     Active Substance: HERBALS
     Indication: PRODUCT USED FOR UNKNOWN INDICATION
     Dosage: 2.5 G
     Route: 048
     Dates: start: 202101, end: 202105
  2. URSODEOXYCHOLIC ACID ? BP [Suspect]
     Active Substance: URSODIOL
     Indication: HEPATIC FUNCTION ABNORMAL
     Dosage: 100 MG
     Route: 048
     Dates: start: 202101, end: 202105

REACTIONS (1)
  - Interstitial lung disease [Recovering/Resolving]
